FAERS Safety Report 22651551 (Version 4)
Quarter: 2023Q4

REPORT INFORMATION
  Report Type: Spontaneous
  Country: US (occurrence: US)
  Receive Date: 20230628
  Receipt Date: 20231201
  Transmission Date: 20240110
  Serious: Yes (Other)
  Sender: FDA-Public Use
  Company Number: US-PFIZER INC-PV202300110501

PATIENT
  Age: 76 Year
  Sex: Female

DRUGS (3)
  1. IBRANCE [Suspect]
     Active Substance: PALBOCICLIB
     Indication: Breast cancer
     Dosage: 125 MG, CYCLIC (1 CAP(S), ORAL, DAILY, DAILY FOR 21 DAYS, THEN OFF FOR 7 DAYS WITH FOOD)
     Route: 048
     Dates: start: 20170106
  2. IBRANCE [Suspect]
     Active Substance: PALBOCICLIB
     Dosage: UNK (REDUCED DOSE TO 16 DAYS)
     Dates: start: 20230816
  3. FASLODEX [Concomitant]
     Active Substance: FULVESTRANT
     Dosage: UNK, MONTHLY

REACTIONS (4)
  - Neutropenia [Unknown]
  - Hypersensitivity [Unknown]
  - Eye infection [Unknown]
  - Dyspnoea [Unknown]
